FAERS Safety Report 21086590 (Version 3)
Quarter: 2022Q3

REPORT INFORMATION
  Report Type: Spontaneous
  Country: US (occurrence: US)
  Receive Date: 20220715
  Receipt Date: 20220819
  Transmission Date: 20221027
  Serious: Yes (Other)
  Sender: FDA-Public Use
  Company Number: US-009507513-2207USA001489

PATIENT
  Age: 79 Year
  Sex: Female

DRUGS (14)
  1. PRINIVIL [Suspect]
     Active Substance: LISINOPRIL
     Dosage: UNK
     Route: 048
  2. PRINIVIL [Suspect]
     Active Substance: LISINOPRIL
     Dosage: UNK
     Route: 048
  3. AMLODIPINE [Concomitant]
     Active Substance: AMLODIPINE BESYLATE
     Dosage: UNK
  4. METOPROLOL TARTRATE [Concomitant]
     Active Substance: METOPROLOL TARTRATE
  5. SIMVASTATIN [Concomitant]
     Active Substance: SIMVASTATIN
  6. METFORMIN [Concomitant]
     Active Substance: METFORMIN HYDROCHLORIDE
  7. DICLOFENAC [Concomitant]
     Active Substance: DICLOFENAC
  8. TIMOLOL [Concomitant]
     Active Substance: TIMOLOL
  9. ESCITALOPRAM [Concomitant]
     Active Substance: ESCITALOPRAM OXALATE
  10. TRIAMCINOLONE ACETONIDE [Concomitant]
     Active Substance: TRIAMCINOLONE ACETONIDE
  11. HYDROXYZINE [Concomitant]
     Active Substance: HYDROXYZINE HYDROCHLORIDE
     Indication: Insomnia
  12. HYDROXYZINE [Concomitant]
     Active Substance: HYDROXYZINE HYDROCHLORIDE
     Indication: Generalised anxiety disorder
  13. LORAZEPAM [Concomitant]
     Active Substance: LORAZEPAM
     Indication: Insomnia
  14. LORAZEPAM [Concomitant]
     Active Substance: LORAZEPAM
     Indication: Generalised anxiety disorder

REACTIONS (1)
  - Hallucination, visual [Recovered/Resolved]
